FAERS Safety Report 4428899-3 (Version None)
Quarter: 2004Q3

REPORT INFORMATION
  Report Type: 
  Country: None (occurrence: None)
  Receive Date: 20040818
  Receipt Date: 20040809
  Transmission Date: 20050211
  Serious: Yes (Hospitalization)
  Sender: FDA-Public Use
  Company Number: US-BRISTOL-MYERS SQUIBB COMPANY-12672796

PATIENT
  Age: 36 Year
  Sex: Female

DRUGS (5)
  1. SERZONE [Suspect]
     Route: 048
  2. ATIVAN [Concomitant]
  3. PREVACID [Concomitant]
  4. PREMARIN [Concomitant]
  5. HYDROCODONE [Concomitant]

REACTIONS (3)
  - DIVERTICULITIS [None]
  - LIVER FUNCTION TEST ABNORMAL [None]
  - OVARIAN CYST [None]
